FAERS Safety Report 14754924 (Version 5)
Quarter: 2018Q4

REPORT INFORMATION
  Report Type: Report from Study
  Country: DE (occurrence: DE)
  Receive Date: 20180413
  Receipt Date: 20181207
  Transmission Date: 20190204
  Serious: Yes (Hospitalization, Other)
  Sender: FDA-Public Use
  Company Number: DE-BRISTOL-MYERS SQUIBB COMPANY-BMS-2018-032850

PATIENT
  Age: 54 Year
  Sex: Male

DRUGS (5)
  1. NIVOLUMAB [Suspect]
     Active Substance: NIVOLUMAB
     Indication: SQUAMOUS CELL CARCINOMA OF HEAD AND NECK
     Dosage: 3 MG/KG, Q2WK
     Route: 042
     Dates: start: 20180322, end: 20180517
  2. METAMIZOL                          /06276701/ [Concomitant]
     Active Substance: METAMIZOLE
     Indication: PROPHYLAXIS
     Dosage: 500 MG, QID
     Route: 065
     Dates: start: 20180322
  3. PREGABALIN. [Concomitant]
     Active Substance: PREGABALIN
     Indication: PROPHYLAXIS
     Dosage: 75 MG, BID
     Route: 065
     Dates: start: 20180322
  4. PANTOPRAZOL                        /01263201/ [Concomitant]
     Active Substance: PANTOPRAZOLE
     Indication: PROPHYLAXIS
     Dosage: 40 MG, QD
     Route: 065
     Dates: start: 20180301
  5. MORPHINE [Concomitant]
     Active Substance: MORPHINE
     Indication: PROPHYLAXIS
     Dosage: 30 MG, BID
     Route: 065
     Dates: start: 20180322

REACTIONS (7)
  - Dyspnoea [Recovering/Resolving]
  - Face oedema [Recovering/Resolving]
  - Haemorrhage [Recovered/Resolved]
  - Stridor [Unknown]
  - Metastases to lymph nodes [Unknown]
  - Malignant neoplasm progression [Unknown]
  - Swelling [Recovering/Resolving]

NARRATIVE: CASE EVENT DATE: 20180406
